FAERS Safety Report 5608085-1 (Version None)
Quarter: 2008Q1

REPORT INFORMATION
  Report Type: 
  Country: None (occurrence: None)
  Receive Date: 20080125
  Receipt Date: 20080125
  Transmission Date: 20080703
  Serious: Yes (Hospitalization)
  Sender: FDA-Public Use
  Company Number: None

PATIENT
  Age: 81 Year
  Sex: Female
  Weight: 72.5755 kg

DRUGS (3)
  1. HEPARIN [Suspect]
     Indication: THROMBOSIS PROPHYLAXIS
     Dosage: 5000 UNITS BID SQ
     Route: 058
     Dates: start: 20080104, end: 20080110
  2. HEPARIN [Suspect]
     Indication: ATRIAL FIBRILLATION
     Dosage: ADJUSTED DOSE PER APTT CONTINUOUS IV DRIP IV DRIP
     Route: 041
     Dates: start: 20080110, end: 20080113
  3. HEPARIN [Suspect]
     Indication: ATRIAL FLUTTER
     Dosage: ADJUSTED DOSE PER APTT CONTINUOUS IV DRIP IV DRIP
     Route: 041
     Dates: start: 20080110, end: 20080113

REACTIONS (4)
  - ATRIAL FIBRILLATION [None]
  - ATRIAL FLUTTER [None]
  - HEPARIN-INDUCED THROMBOCYTOPENIA [None]
  - THROMBOSIS [None]
